FAERS Safety Report 20038600 (Version 1)
Quarter: 2021Q4

REPORT INFORMATION
  Report Type: Spontaneous
  Country: DE (occurrence: DE)
  Receive Date: 20211105
  Receipt Date: 20211105
  Transmission Date: 20220303
  Serious: Yes (Other)
  Sender: FDA-Public Use
  Company Number: None

PATIENT
  Age: 69 Year
  Sex: Female
  Weight: 67 kg

DRUGS (1)
  1. CLINDAMYCIN [Suspect]
     Active Substance: CLINDAMYCIN
     Indication: Apicectomy
     Dosage: 2 X 2,300 MG FOR 2 DAYS, THEN THE FIRST ALLERGIC REACTION,1200 MG
     Route: 048
     Dates: start: 20210928, end: 20210930

REACTIONS (11)
  - Angina pectoris [Recovering/Resolving]
  - Somnolence [Recovering/Resolving]
  - Dysphonia [Recovering/Resolving]
  - Oral disorder [Recovering/Resolving]
  - Pyrexia [Recovering/Resolving]
  - Headache [Recovering/Resolving]
  - Diarrhoea [Recovering/Resolving]
  - Nausea [Recovering/Resolving]
  - Asthenia [Recovering/Resolving]
  - Hypersensitivity [Recovering/Resolving]
  - Abdominal pain [Recovering/Resolving]

NARRATIVE: CASE EVENT DATE: 20210930
